FAERS Safety Report 8761993 (Version 2)
Quarter: 2013Q4

REPORT INFORMATION
  Report Type: Spontaneous
  Country: US (occurrence: US)
  Receive Date: 20120830
  Receipt Date: 20131101
  Transmission Date: 20140711
  Serious: No
  Sender: FDA-Public Use
  Company Number: US-009507513-1207USA011576

PATIENT
  Age: 17 Year
  Sex: Female
  Weight: 45 kg

DRUGS (3)
  1. IMPLANON [Suspect]
     Dosage: UNK
     Dates: start: 201102
  2. FLUDROCORTISONE [Concomitant]
     Indication: LOSS OF CONSCIOUSNESS
  3. NUVIGIL [Concomitant]

REACTIONS (1)
  - Narcolepsy [Recovering/Resolving]
